FAERS Safety Report 8702782 (Version 3)
Quarter: 2012Q4

REPORT INFORMATION
  Report Type: 
  Country: US (occurrence: US)
  Receive Date: 20120803
  Receipt Date: 20120911
  Transmission Date: 20130627
  Serious: Yes (Other)
  Sender: FDA-Public Use
  Company Number: US-PFIZER INC-2012186951

PATIENT
  Age: 60 Year
  Sex: Female
  Weight: 110 kg

DRUGS (9)
  1. LIPITOR [Suspect]
     Indication: BLOOD CHOLESTEROL INCREASED
     Dosage: 10 mg, daily
     Dates: start: 1992
  2. LIPITOR [Suspect]
     Dosage: 40 mg, daily
  3. ZOLOFT [Suspect]
     Indication: DEPRESSION
     Dosage: 100 mg, daily
     Dates: start: 2008
  4. ZOLOFT [Suspect]
     Dosage: 50 mg, 1x/day
     Dates: start: 2008
  5. ATORVASTATIN CALCIUM [Suspect]
     Dosage: UNK
  6. GLUCOSAMINE [Concomitant]
     Indication: PROPHYLAXIS
     Dosage: 1 DF, 2x/day
  7. GLUCOSAMINE [Concomitant]
     Indication: ARTHROPATHY
  8. CALCIUM [Concomitant]
     Indication: PROPHYLAXIS
     Dosage: 1 DF, 2x/day
  9. CALCIUM [Concomitant]
     Indication: ARTHROPATHY

REACTIONS (3)
  - Diabetes mellitus [Unknown]
  - Vitamin D decreased [Unknown]
  - Drug ineffective [Unknown]
